FAERS Safety Report 4836359-0 (Version None)
Quarter: 2005Q4

REPORT INFORMATION
  Report Type: 
  Country: None (occurrence: None)
  Receive Date: 20051123
  Receipt Date: 20051116
  Transmission Date: 20060501
  Serious: Yes (Hospitalization)
  Sender: FDA-Public Use
  Company Number: PHBS2005JP16964

PATIENT
  Age: 36 Year
  Sex: Female

DRUGS (1)
  1. VOLTAREN [Suspect]
     Indication: DYSMENORRHOEA
     Route: 048
     Dates: start: 20030101, end: 20050101

REACTIONS (3)
  - CHEST PAIN [None]
  - COUGH [None]
  - FORCED EXPIRATORY VOLUME DECREASED [None]
